FAERS Safety Report 9639859 (Version 1)
Quarter: 2013Q4

REPORT INFORMATION
  Report Type: Spontaneous
  Country: US (occurrence: None)
  Receive Date: 20131021
  Receipt Date: 20131021
  Transmission Date: 20140711
  Serious: Yes (Hospitalization)
  Sender: FDA-Public Use
  Company Number: None

PATIENT
  Age: 36 Year
  Sex: Female
  Weight: 54.43 kg

DRUGS (1)
  1. MIRENA [Suspect]

REACTIONS (5)
  - Pregnancy with contraceptive device [None]
  - Caesarean section [None]
  - Uterine malposition [None]
  - Device dislocation [None]
  - Exposure during pregnancy [None]
